FAERS Safety Report 6292659-1 (Version None)
Quarter: 2009Q3

REPORT INFORMATION
  Report Type: 
  Country: None (occurrence: None)
  Receive Date: 20090731
  Receipt Date: 20090717
  Transmission Date: 20100115
  Serious: Yes (Death, Life-Threatening, Hospitalization)
  Sender: FDA-Public Use
  Company Number: US-BAYER-200910538GPV

PATIENT
  Age: 60 Year
  Sex: Male

DRUGS (11)
  1. ACETYLSALICYLIC ACID [Suspect]
     Indication: HYPERTENSION
     Route: 048
     Dates: end: 20081125
  2. SUNITINIB MALATE [Suspect]
     Indication: NON-SMALL CELL LUNG CANCER METASTATIC
     Route: 048
     Dates: start: 20080310, end: 20081126
  3. TARCEVA [Suspect]
     Indication: NON-SMALL CELL LUNG CANCER METASTATIC
     Route: 048
     Dates: start: 20080310, end: 20081126
  4. DEMECLOCYCLINE HCL [Concomitant]
     Indication: INAPPROPRIATE ANTIDIURETIC HORMONE SECRETION
     Route: 065
     Dates: start: 20081109
  5. SYMBICORT (BUDESONIDE AND FORMOTEROL) [Concomitant]
     Indication: CHRONIC OBSTRUCTIVE PULMONARY DISEASE
     Route: 065
  6. THIAMINE HCL [Concomitant]
     Indication: VITAMIN B COMPLEX DEFICIENCY
  7. RAMIPRIL [Concomitant]
     Indication: HYPERTENSION
     Route: 065
  8. VITAMIN B COMPLEX CAP [Concomitant]
     Indication: VITAMIN B COMPLEX DEFICIENCY
     Route: 065
  9. ONDANSETRON [Concomitant]
     Indication: NAUSEA
     Route: 065
  10. VENTOLIN (SALBURNTAMOL) [Concomitant]
     Indication: CHRONIC OBSTRUCTIVE PULMONARY DISEASE
     Route: 065
  11. TEMAZEPAM [Concomitant]
     Indication: INSOMNIA
     Route: 065

REACTIONS (4)
  - CHRONIC OBSTRUCTIVE PULMONARY DISEASE [None]
  - HAEMORRHAGIC STROKE [None]
  - NON-SMALL CELL LUNG CANCER [None]
  - PERIPHERAL VASCULAR DISORDER [None]
